FAERS Safety Report 7447341-1 (Version None)
Quarter: 2011Q2

REPORT INFORMATION
  Report Type: 
  Country: None (occurrence: None)
  Receive Date: 20110429
  Receipt Date: 20110420
  Transmission Date: 20111010
  Serious: Yes (Other)
  Sender: FDA-Public Use
  Company Number: US-JNJFOC-20110409451

PATIENT
  Age: 51 Year
  Sex: Male
  Weight: 81.65 kg

DRUGS (4)
  1. TEGRETOL [Suspect]
     Indication: EPILEPSY
     Route: 065
  2. ZYRTEC [Suspect]
     Route: 048
  3. ZYRTEC [Suspect]
     Indication: MULTIPLE ALLERGIES
     Route: 048
  4. PROZAC [Suspect]
     Indication: DEPRESSION
     Route: 065

REACTIONS (1)
  - CONVULSION [None]
